FAERS Safety Report 11910012 (Version 2)
Quarter: 2016Q1

REPORT INFORMATION
  Report Type: Spontaneous
  Country: US (occurrence: US)
  Receive Date: 20160112
  Receipt Date: 20160309
  Transmission Date: 20160526
  Serious: No
  Sender: FDA-Public Use
  Company Number: US-B.I. PHARMACEUTICALS,INC./RIDGEFIELD-2016-BI-00185BP

PATIENT
  Age: 87 Year
  Sex: Male
  Weight: 68.04 kg

DRUGS (3)
  1. SPIRIVA [Suspect]
     Active Substance: TIOTROPIUM BROMIDE MONOHYDRATE
     Indication: CHRONIC OBSTRUCTIVE PULMONARY DISEASE
     Dosage: 18 MCG
     Route: 055
     Dates: start: 201412, end: 201512
  2. ADVAIR HFA [Concomitant]
     Active Substance: FLUTICASONE PROPIONATE\SALMETEROL XINAFOATE
     Indication: CHRONIC OBSTRUCTIVE PULMONARY DISEASE
     Dosage: 2 ANZ
     Route: 055
     Dates: start: 201412
  3. MULTAQ [Concomitant]
     Active Substance: DRONEDARONE
     Indication: ARRHYTHMIA
     Route: 065
     Dates: start: 201412

REACTIONS (3)
  - Product quality issue [Unknown]
  - Throat tightness [Not Recovered/Not Resolved]
  - Dyspnoea [Not Recovered/Not Resolved]

NARRATIVE: CASE EVENT DATE: 201512
